FAERS Safety Report 8584695-7 (Version None)
Quarter: 2012Q3

REPORT INFORMATION
  Report Type: 
  Country: None (occurrence: None)
  Receive Date: 20120810
  Receipt Date: 20110701
  Transmission Date: 20120928
  Serious: Yes (Death, Other)
  Sender: FDA-Public Use
  Company Number: JP-PFIZER INC-2011138404

PATIENT
  Age: 84 Year
  Sex: Male

DRUGS (11)
  1. MONTELUKAST SODIUM [Concomitant]
     Dosage: UNK
     Route: 048
  2. FAMOTIDINE [Concomitant]
     Dosage: UNK
     Route: 048
  3. MUCODYNE [Concomitant]
     Dosage: UNK
     Route: 048
  4. FLUTICASONE PROPIONATE [Concomitant]
     Dosage: UNK
     Route: 050
  5. CONIEL [Concomitant]
     Dosage: UNK
     Route: 048
  6. MAGNESIUM OXIDE [Concomitant]
     Dosage: UNK
     Route: 048
  7. UNIPHYL [Concomitant]
     Dosage: UNK
     Route: 048
  8. TAMSULOSIN HCL [Concomitant]
     Route: 048
  9. NEOPHYLLIN [Concomitant]
     Dosage: UNK
     Route: 048
  10. ZOSYN [Suspect]
     Indication: PNEUMONIA
     Dosage: 2.25 G, SINGLE
     Route: 041
     Dates: start: 20110510, end: 20110510
  11. LOSARTAN POTASSIUM AND HYDROCHLOROTHIAZIDE [Concomitant]
     Dosage: UNK
     Route: 048

REACTIONS (1)
  - ANAPHYLACTIC SHOCK [None]
